FAERS Safety Report 6141510-9 (Version None)
Quarter: 2009Q2

REPORT INFORMATION
  Report Type: 
  Country: None (occurrence: None)
  Receive Date: 20090402
  Receipt Date: 20090325
  Transmission Date: 20091009
  Serious: Yes (Other)
  Sender: FDA-Public Use
  Company Number: FR-ELI_LILLY_AND_COMPANY-FR200903007334

PATIENT
  Age: 62 Year
  Sex: Male

DRUGS (3)
  1. BYETTA [Suspect]
     Dosage: 5 UG, DAILY (1/D)
     Route: 058
     Dates: start: 20090101, end: 20090304
  2. ACARBOSE [Concomitant]
     Dosage: UNK, UNKNOWN
     Route: 048
  3. METFORMIN HCL [Concomitant]
     Dosage: UNK, UNKNOWN
     Route: 048

REACTIONS (2)
  - ASTHENIA [None]
  - SYNCOPE [None]
